FAERS Safety Report 7776901 (Version 2)
Quarter: 2012Q4

REPORT INFORMATION
  Report Type: 
  Country: US (occurrence: US)
  Receive Date: 20110127
  Receipt Date: 20121023
  Transmission Date: 20130627
  Serious: Yes (Other)
  Sender: FDA-Public Use
  Company Number: US-BAYER-2011-006454

PATIENT
  Age: 27 Year
  Sex: Female
  Weight: 61.68 kg

DRUGS (1)
  1. NATAZIA [Suspect]
     Indication: CONTRACEPTION
     Dosage: UNK
     Route: 048
     Dates: start: 20100823, end: 20101123

REACTIONS (3)
  - Pregnancy on oral contraceptive [None]
  - Menstruation delayed [None]
  - Pre-eclampsia [None]
